FAERS Safety Report 7189939-4 (Version None)
Quarter: 2010Q4

REPORT INFORMATION
  Report Type: 
  Country: None (occurrence: None)
  Receive Date: 20101123
  Receipt Date: 20100921
  Transmission Date: 20110411
  Serious: No
  Sender: FDA-Public Use
  Company Number: 017570

PATIENT
  Sex: Female
  Weight: 93 kg

DRUGS (4)
  1. CIMZIA [Suspect]
     Indication: CROHN'S DISEASE
     Dosage: (200 MG 1X/2 WEEKS SUBCUTANEOUS)
     Route: 058
     Dates: start: 20100401, end: 20100601
  2. NEXIUM [Concomitant]
  3. CONTRACEPTIVES NOS [Concomitant]
  4. ENTOCORT EC [Concomitant]

REACTIONS (1)
  - HYPERSENSITIVITY [None]
